FAERS Safety Report 20541079 (Version 1)
Quarter: 2022Q1

REPORT INFORMATION
  Report Type: Spontaneous
  Country: FR (occurrence: FR)
  Receive Date: 20220302
  Receipt Date: 20220302
  Transmission Date: 20220424
  Serious: Yes (Other)
  Sender: FDA-Public Use
  Company Number: FR-JNJFOC-20211015019

PATIENT
  Age: 49 Year
  Sex: Male

DRUGS (2)
  1. HALDOL [Suspect]
     Active Substance: HALOPERIDOL
     Indication: Product used for unknown indication
     Route: 065
  2. LOXAPINE [Suspect]
     Active Substance: LOXAPINE
     Indication: Product used for unknown indication
     Route: 065

REACTIONS (1)
  - Cardiomyopathy [Unknown]

NARRATIVE: CASE EVENT DATE: 20211001
